FAERS Safety Report 16097681 (Version 1)
Quarter: 2019Q1

REPORT INFORMATION
  Report Type: Spontaneous
  Country: GB (occurrence: GB)
  Receive Date: 20190320
  Receipt Date: 20190320
  Transmission Date: 20190418
  Serious: Yes (Death)
  Sender: FDA-Public Use
  Company Number: GB-PFIZER INC-2019116855

PATIENT
  Age: 67 Year
  Sex: Male

DRUGS (2)
  1. ALEMTUZUMAB [Suspect]
     Active Substance: ALEMTUZUMAB
     Indication: T-CELL PROLYMPHOCYTIC LEUKAEMIA
     Dosage: ESCALATED 30 TO 90 MG THREE TIMES WEEKLY
     Route: 042
     Dates: start: 20180920, end: 201901
  2. PENTOSTATIN. [Suspect]
     Active Substance: PENTOSTATIN
     Indication: T-CELL PROLYMPHOCYTIC LEUKAEMIA
     Dosage: 4 MG, CYCLIC, WEEKLY THEN FORTNIGHTLY
     Route: 042
     Dates: start: 20181116, end: 20190107

REACTIONS (2)
  - Second primary malignancy [Fatal]
  - B-cell lymphoma [Fatal]

NARRATIVE: CASE EVENT DATE: 201901
